FAERS Safety Report 8196182-9 (Version None)
Quarter: 2012Q1

REPORT INFORMATION
  Report Type: 
  Country: None (occurrence: None)
  Receive Date: 20120306
  Receipt Date: 20120221
  Transmission Date: 20120608
  Serious: Yes (Hospitalization, Disabling)
  Sender: FDA-Public Use
  Company Number: PRAN20120003

PATIENT
  Age: 48 Year
  Sex: Male

DRUGS (5)
  1. ATENOLOL [Suspect]
     Indication: MYOCARDIAL ISCHAEMIA
     Dates: start: 20050101, end: 20070101
  2. ATENOLOL [Suspect]
     Indication: MYOCARDIAL ISCHAEMIA
     Dates: start: 20090101
  3. PROPRANOLOL [Suspect]
     Indication: PORTAL HYPERTENSION
     Dosage: 80 MG, 2 IN 1 D,
     Dates: start: 20070101, end: 20091101
  4. SPIRONOLACTONE [Concomitant]
  5. FUROSEMIDE [Concomitant]

REACTIONS (7)
  - HEPATIC CIRRHOSIS [None]
  - BLOOD ALBUMIN DECREASED [None]
  - PORTAL HYPERTENSION [None]
  - MECHANICAL ILEUS [None]
  - SCLEROSING ENCAPSULATING PERITONITIS [None]
  - ASCITES [None]
  - LIVER INJURY [None]
